FAERS Safety Report 6724596-X (Version None)
Quarter: 2010Q2

REPORT INFORMATION
  Report Type: 
  Country: None (occurrence: None)
  Receive Date: 20100513
  Receipt Date: 20100506
  Transmission Date: 20101027
  Serious: Yes (Life-Threatening, Hospitalization, Other)
  Sender: FDA-Public Use
  Company Number: US-AMGEN-US335714

PATIENT
  Sex: Male
  Weight: 35 kg

DRUGS (11)
  1. NPLATE [Suspect]
     Indication: IDIOPATHIC THROMBOCYTOPENIC PURPURA
     Route: 058
     Dates: start: 20080912, end: 20091117
  2. IMMU-G [Concomitant]
     Route: 042
     Dates: start: 20050101, end: 20080801
  3. SUCRALFATE [Concomitant]
  4. OMEPRAZOLE [Concomitant]
  5. AMOXICILLIN [Concomitant]
  6. BACTRIM [Concomitant]
  7. CREON [Concomitant]
  8. ALBUTEROL [Concomitant]
  9. CORTICOSTEROIDS [Concomitant]
  10. PLAQUENIL [Concomitant]
  11. TACROLIMUS [Concomitant]

REACTIONS (8)
  - LYMPHOMA [None]
  - LYMPHOPROLIFERATIVE DISORDER [None]
  - PNEUMONIA [None]
  - SPLENECTOMY [None]
  - SPLENOMEGALY [None]
  - THERAPEUTIC RESPONSE DECREASED [None]
  - THROMBOCYTOPENIA [None]
  - WOUND SECRETION [None]
